FAERS Safety Report 5042181-5 (Version None)
Quarter: 2006Q2

REPORT INFORMATION
  Report Type: 
  Country: None (occurrence: None)
  Receive Date: 20060615
  Receipt Date: 20060606
  Transmission Date: 20061013
  Serious: Yes (Other)
  Sender: FDA-Public Use
  Company Number: 2006BH010649

PATIENT
  Sex: Female

DRUGS (1)
  1. ALBUTEIN [Suspect]
     Indication: PLASMAPHERESIS

REACTIONS (1)
  - HEPATITIS C [None]
